FAERS Safety Report 6959884-5 (Version None)
Quarter: 2010Q3

REPORT INFORMATION
  Report Type: 
  Country: None (occurrence: None)
  Receive Date: 20100901
  Receipt Date: 20100826
  Transmission Date: 20110219
  Serious: No
  Sender: FDA-Public Use
  Company Number: 2009BI001463

PATIENT
  Sex: Female

DRUGS (1)
  1. TYSABRI [Suspect]
     Indication: MULTIPLE SCLEROSIS
     Route: 042
     Dates: start: 20090107

REACTIONS (8)
  - CHEST DISCOMFORT [None]
  - EYE PAIN [None]
  - FATIGUE [None]
  - HEAD DISCOMFORT [None]
  - HEADACHE [None]
  - MUSCULOSKELETAL STIFFNESS [None]
  - NASOPHARYNGITIS [None]
  - SINUSITIS [None]
